FAERS Safety Report 9588975 (Version 1)
Quarter: 2013Q4

REPORT INFORMATION
  Report Type: Spontaneous
  Country: US (occurrence: US)
  Receive Date: 20131003
  Receipt Date: 20131003
  Transmission Date: 20140711
  Serious: No
  Sender: FDA-Public Use
  Company Number: US-AMGEN-USASP2012067364

PATIENT
  Sex: Female

DRUGS (4)
  1. ENBREL [Suspect]
     Indication: PSORIATIC ARTHROPATHY
     Dosage: 50 MG, 2 TIMES/WK
     Route: 058
  2. HYDROCHLOROTH [Concomitant]
     Dosage: 12.5 MG, UNK
  3. LEVOTHYROXIN [Concomitant]
     Dosage: 25 MCG
  4. PRAVASTATIN [Concomitant]
     Dosage: 10 MG, UNK

REACTIONS (3)
  - Pain [Unknown]
  - Pruritus [Unknown]
  - Condition aggravated [Unknown]
